FAERS Safety Report 6505286-5 (Version None)
Quarter: 2009Q4

REPORT INFORMATION
  Report Type: 
  Country: None (occurrence: None)
  Receive Date: 20091218
  Receipt Date: 20091209
  Transmission Date: 20100525
  Serious: Yes (Other)
  Sender: FDA-Public Use
  Company Number: GB-JNJFOC-20091104684

PATIENT
  Age: 71 Year
  Sex: Female
  Weight: 65 kg

DRUGS (6)
  1. REMICADE [Suspect]
     Indication: RHEUMATOID ARTHRITIS
     Route: 042
     Dates: start: 20040115
  2. PREDNISOLONE [Concomitant]
  3. LEDERFEN [Concomitant]
  4. MISOPROSTOL [Concomitant]
  5. METHOTREXATE [Concomitant]
     Route: 048
  6. FOLIC ACID [Concomitant]

REACTIONS (2)
  - JOINT ARTHROPLASTY [None]
  - NEOPLASM MALIGNANT [None]
